FAERS Safety Report 19460609 (Version 2)
Quarter: 2021Q2

REPORT INFORMATION
  Report Type: Report from Study
  Country: CA (occurrence: CA)
  Receive Date: 20210625
  Receipt Date: 20210629
  Transmission Date: 20210717
  Serious: Yes (Hospitalization)
  Sender: FDA-Public Use
  Company Number: CA-JNJFOC-20210654633

PATIENT
  Age: 34 Year
  Sex: Female

DRUGS (12)
  1. ESCITALOPRAM [Concomitant]
     Active Substance: ESCITALOPRAM OXALATE
     Dosage: UNK
     Dates: start: 20200926
  2. LEVETIRACETAM. [Concomitant]
     Active Substance: LEVETIRACETAM
     Dosage: UNK
     Dates: start: 20200926
  3. ADULT MULTIVITAMIN [Concomitant]
     Dosage: UNK
     Dates: start: 20200927
  4. TOPIRAMATE. [Concomitant]
     Active Substance: TOPIRAMATE
     Dosage: UNK
     Dates: start: 20201007
  5. VITAMIN D [VITAMIN D NOS] [Concomitant]
     Active Substance: VITAMIN D NOS
     Dosage: UNK
     Dates: start: 20210301
  6. SENOKOT [Concomitant]
     Active Substance: SENNOSIDES
     Dosage: UNK
     Dates: start: 20201007
  7. RIVAROXABAN [Suspect]
     Active Substance: RIVAROXABAN
     Indication: CEREBRAL VENOUS THROMBOSIS
     Dosage: 20 MG, QD
     Route: 048
     Dates: start: 20201001, end: 20210318
  8. ACETAMINOPHEN. [Concomitant]
     Active Substance: ACETAMINOPHEN
     Dosage: UNK
     Dates: start: 20201007
  9. ASHWAGANDHA ROOT [Concomitant]
     Dosage: UNK
     Dates: start: 20210301
  10. THIAMINE. [Concomitant]
     Active Substance: THIAMINE
     Dosage: UNK
     Dates: start: 20200927
  11. CHLOROPHYLL [Concomitant]
     Dosage: UNK
     Dates: start: 20201217
  12. L?TYROSINE [Concomitant]
     Active Substance: TYROSINE
     Dosage: UNK
     Dates: start: 20210301

REACTIONS (1)
  - Headache [Recovering/Resolving]

NARRATIVE: CASE EVENT DATE: 20210315
